FAERS Safety Report 13826881 (Version 1)
Quarter: 2017Q3

REPORT INFORMATION
  Report Type: Spontaneous
  Country: US (occurrence: US)
  Receive Date: 20170802
  Receipt Date: 20170802
  Transmission Date: 20171127
  Serious: No
  Sender: FDA-Public Use
  Company Number: US-ROCHE-660141

PATIENT
  Age: 57 Year
  Sex: Female

DRUGS (2)
  1. BONIVA [Suspect]
     Active Substance: IBANDRONATE SODIUM
     Indication: OSTEOPENIA
     Route: 048
  2. XALATAN [Concomitant]
     Active Substance: LATANOPROST
     Dosage: EYE DROPS
     Route: 065

REACTIONS (1)
  - Arthralgia [Unknown]
